FAERS Safety Report 24096660 (Version 1)
Quarter: 2024Q3

REPORT INFORMATION
  Report Type: Spontaneous
  Country: US (occurrence: US)
  Receive Date: 20240716
  Receipt Date: 20240716
  Transmission Date: 20241017
  Serious: No
  Sender: SANOFI AVENTIS
  Company Number: US-SA-SAC20240712000300

PATIENT
  Age: 72 Year
  Sex: Female

DRUGS (2)
  1. DUPIXENT [Suspect]
     Active Substance: DUPILUMAB
     Indication: Asthma
     Dosage: 600 MG, 1X
     Route: 058
     Dates: start: 20240705, end: 20240705
  2. NUCALA [Concomitant]
     Active Substance: MEPOLIZUMAB
     Dosage: UNK

REACTIONS (2)
  - Dizziness [Recovering/Resolving]
  - Injection site bruising [Unknown]

NARRATIVE: CASE EVENT DATE: 20240701
